FAERS Safety Report 6348299-9 (Version None)
Quarter: 2009Q3

REPORT INFORMATION
  Report Type: 
  Country: None (occurrence: None)
  Receive Date: 20090908
  Receipt Date: 20090824
  Transmission Date: 20100115
  Serious: Yes (Life-Threatening)
  Sender: FDA-Public Use
  Company Number: APP200900538

PATIENT
  Age: 86 Year
  Sex: Female

DRUGS (1)
  1. PROTAMINE SULFATE  (PROTAMINE SULFATE) [Suspect]
     Indication: DRUG USE FOR UNKNOWN INDICATION
     Dates: start: 20060522, end: 20060522

REACTIONS (3)
  - ATRIOVENTRICULAR BLOCK [None]
  - BLOOD PRESSURE SYSTOLIC DECREASED [None]
  - PULMONARY ARTERIAL PRESSURE INCREASED [None]
